FAERS Safety Report 23523292 (Version 2)
Quarter: 2024Q1

REPORT INFORMATION
  Report Type: Spontaneous
  Country: US (occurrence: None)
  Receive Date: 20240214
  Receipt Date: 20240325
  Transmission Date: 20240410
  Serious: Yes (Other)
  Sender: FDA-Public Use
  Company Number: 2024A031521

PATIENT
  Age: 735 Month
  Sex: Female

DRUGS (1)
  1. SAPHNELO [Suspect]
     Active Substance: ANIFROLUMAB\ANIFROLUMAB-FNIA
     Indication: Systemic lupus erythematosus
     Route: 041

REACTIONS (2)
  - Corneal erosion [Recovering/Resolving]
  - Blindness [Unknown]

NARRATIVE: CASE EVENT DATE: 20231101
